FAERS Safety Report 5227257-1 (Version None)
Quarter: 2007Q1

REPORT INFORMATION
  Report Type: 
  Country: None (occurrence: None)
  Receive Date: 20070202
  Receipt Date: 20070118
  Transmission Date: 20070707
  Serious: Yes (Hospitalization)
  Sender: FDA-Public Use
  Company Number: GBWYE116704OCT06

PATIENT
  Sex: Female

DRUGS (5)
  1. ENBREL [Suspect]
     Indication: DRUG USE FOR UNKNOWN INDICATION
     Route: 058
     Dates: start: 20041101, end: 20050318
  2. METHOTREXATE [Suspect]
     Indication: RHEUMATOID ARTHRITIS
     Route: 048
     Dates: start: 19980301, end: 20050301
  3. FLECAINIDE ACETATE [Concomitant]
     Dosage: 100MG FREQUENCY UNKNOWN
     Route: 048
  4. DIDRONEL [Concomitant]
     Dosage: 400MG FREQUENCY UNKNOWN
     Route: 048
  5. PREDNISOLONE [Concomitant]
     Dosage: UNKNOWN
     Route: 065

REACTIONS (1)
  - INTERSTITIAL LUNG DISEASE [None]
